FAERS Safety Report 23990984 (Version 2)
Quarter: 2024Q4

REPORT INFORMATION
  Report Type: Spontaneous
  Country: US (occurrence: US)
  Receive Date: 20240619
  Receipt Date: 20241031
  Transmission Date: 20250114
  Serious: Yes (Other)
  Sender: BRISTOL-MYERS SQUIBB COMPANY
  Company Number: US-BRISTOL-MYERS SQUIBB COMPANY-2024-098393

PATIENT
  Age: 62 Year
  Sex: Female
  Weight: 58.9 kg

DRUGS (9)
  1. POMALYST [Suspect]
     Active Substance: POMALIDOMIDE
     Indication: Plasma cell myeloma
     Route: 048
     Dates: start: 20240413
  2. POMALYST [Suspect]
     Active Substance: POMALIDOMIDE
     Dosage: DOSE : 3MG;     FREQ : ONCE A DAY 21 DAYS ON 7 DAYS OFF FOR 28 DAY CYCLE
     Route: 048
     Dates: start: 20240525
  3. POMALYST [Suspect]
     Active Substance: POMALIDOMIDE
     Dosage: DOSE : 2MG; FREQ : DAILY, 14 DAYS ON 14 DAYS OFF
     Route: 048
     Dates: start: 20240412, end: 20241018
  4. ELIQUIS [Concomitant]
     Active Substance: APIXABAN
     Indication: Product used for unknown indication
  5. VITAMIN D NOS [Concomitant]
     Active Substance: CHOLECALCIFEROL\ERGOCALCIFEROL
     Indication: Product used for unknown indication
     Dosage: 1000 IU CAPSULE
  6. TUMS [Concomitant]
     Active Substance: CALCIUM CARBONATE
     Indication: Product used for unknown indication
  7. ACYCLOVIR [Concomitant]
     Active Substance: ACYCLOVIR
     Indication: Product used for unknown indication
  8. DEXAMETHASONE [Concomitant]
     Active Substance: DEXAMETHASONE
     Indication: Product used for unknown indication
  9. ONDANSETRON [Concomitant]
     Active Substance: ONDANSETRON
     Indication: Product used for unknown indication
     Dosage: ODT 8MG TABLETS

REACTIONS (3)
  - Neutropenia [Unknown]
  - Plasma cell myeloma [Unknown]
  - Off label use [Unknown]
